FAERS Safety Report 5194058-2 (Version None)
Quarter: 2006Q4

REPORT INFORMATION
  Report Type: 
  Country: None (occurrence: None)
  Receive Date: 20061222
  Receipt Date: 20061207
  Transmission Date: 20070319
  Serious: Yes (Hospitalization, Other)
  Sender: FDA-Public Use
  Company Number: 2004022537

PATIENT
  Age: 47 Year
  Sex: Male

DRUGS (5)
  1. NEURONTIN [Suspect]
     Indication: CONVULSION
     Dosage: 3600 MG (7 IN 1 D), ORAL
     Route: 048
     Dates: start: 19940101
  2. DILANTIN [Suspect]
     Indication: CONVULSION
     Dosage: 500 MG,ORAL
     Route: 048
     Dates: start: 19700101, end: 19940101
  3. LAMICTAL [Suspect]
     Dosage: ORAL
     Route: 048
  4. PROTEIN SUPPLEMENTS (PROTEIN SUPPLEMENTS) [Concomitant]
  5. PHENOBARBITAL TAB [Concomitant]

REACTIONS (36)
  - AMNESIA [None]
  - ANTICONVULSANT TOXICITY [None]
  - APHASIA [None]
  - BALANCE DISORDER [None]
  - BREAST MASS [None]
  - BREAST PAIN [None]
  - BREATH SOUNDS ABNORMAL [None]
  - CONVULSION [None]
  - CORNEAL REFLEX DECREASED [None]
  - DECREASED APPETITE [None]
  - DRUG INTERACTION [None]
  - DRUG LEVEL FLUCTUATING [None]
  - DYSARTHRIA [None]
  - DYSPNOEA [None]
  - DYSURIA [None]
  - EATING DISORDER [None]
  - FALL [None]
  - GYNAECOMASTIA [None]
  - HEADACHE [None]
  - HYPOAESTHESIA [None]
  - IMPATIENCE [None]
  - INSOMNIA [None]
  - LIVER FUNCTION TEST ABNORMAL [None]
  - MICTURITION DISORDER [None]
  - MOOD SWINGS [None]
  - NARCOLEPSY [None]
  - NAUSEA [None]
  - PERSONALITY CHANGE [None]
  - PRURITUS GENERALISED [None]
  - THERMAL BURN [None]
  - THIRST DECREASED [None]
  - TOOTH FRACTURE [None]
  - TOOTH LOSS [None]
  - VOMITING [None]
  - WEIGHT DECREASED [None]
  - WEIGHT INCREASED [None]
